FAERS Safety Report 9123802 (Version 1)
Quarter: 2013Q1

REPORT INFORMATION
  Report Type: Spontaneous
  Country: IT (occurrence: IT)
  Receive Date: 20130227
  Receipt Date: 20130227
  Transmission Date: 20140127
  Serious: Yes (Other)
  Sender: FDA-Public Use
  Company Number: IT-ASTRAZENECA-2013SE11108

PATIENT
  Age: 26528 Day
  Sex: Female

DRUGS (2)
  1. TENORETIC [Suspect]
     Indication: HYPERTENSION
     Dosage: 50 MG + 12.5 MG TABLETS, 1 DOSAGE FORM, DAILY
     Route: 048
     Dates: start: 20080101, end: 20130211
  2. NIFEDICOR [Concomitant]

REACTIONS (1)
  - Hypokalaemia [Recovering/Resolving]
